FAERS Safety Report 24720401 (Version 1)
Quarter: 2024Q4

REPORT INFORMATION
  Report Type: Spontaneous
  Country: US (occurrence: US)
  Receive Date: 20241211
  Receipt Date: 20241211
  Transmission Date: 20250115
  Serious: Yes (Hospitalization, Other)
  Sender: MEDLEY PHARMACEUTICALS LIMITED
  Company Number: US-MEDLEY-000024

PATIENT
  Sex: Female

DRUGS (5)
  1. PHENOBARBITAL [Concomitant]
     Active Substance: PHENOBARBITAL
     Indication: Status epilepticus
     Dosage: SINGLE DOSE (20 MG/KG/DOSE) PHENOBARBITAL IV
     Route: 042
  2. PHENOBARBITAL [Concomitant]
     Active Substance: PHENOBARBITAL
     Indication: Status epilepticus
     Dosage: PHENOBARBITAL 5 MG/KG/DAY
     Route: 065
  3. FOSPHENYTOIN [Concomitant]
     Active Substance: FOSPHENYTOIN
     Indication: Status epilepticus
     Dosage: FOSPHENYTOIN 20 MG/KG/DOSE X2 DOSES ON DOL 1 AND 2
     Route: 065
  4. MIDAZOLAM [Concomitant]
     Active Substance: MIDAZOLAM
     Indication: Status epilepticus
     Dosage: MIDAZOLAM INFUSION 90 MICROG/KG/MIN
     Route: 065
  5. LACOSAMIDE [Suspect]
     Active Substance: LACOSAMIDE
     Indication: Status epilepticus
     Route: 065

REACTIONS (2)
  - Cardiac dysfunction [Recovered/Resolved]
  - Hypertension [Recovered/Resolved]
